FAERS Safety Report 5641692-9 (Version None)
Quarter: 2008Q1

REPORT INFORMATION
  Report Type: 
  Country: None (occurrence: None)
  Receive Date: 20080227
  Receipt Date: 20080215
  Transmission Date: 20080703
  Serious: Yes (Death)
  Sender: FDA-Public Use
  Company Number: US-WYE-H02696708

PATIENT
  Age: 80 Year
  Sex: Male

DRUGS (4)
  1. TIGECYCLINE [Suspect]
     Indication: MULTIPLE-DRUG RESISTANCE
     Dosage: 100MG LOADING DOSE THEN 50MG EVERY 12 HOURS
     Route: 042
  2. TIGECYCLINE [Suspect]
     Indication: ACINETOBACTER INFECTION
  3. TIGECYCLINE [Suspect]
     Indication: PNEUMONIA
  4. CEFEPIME [Concomitant]

REACTIONS (2)
  - ACINETOBACTER INFECTION [None]
  - DRUG INEFFECTIVE [None]
